FAERS Safety Report 18521437 (Version 3)
Quarter: 2021Q1

REPORT INFORMATION
  Report Type: Spontaneous
  Country: JP (occurrence: JP)
  Receive Date: 20201119
  Receipt Date: 20210128
  Transmission Date: 20210419
  Serious: Yes (Other)
  Sender: FDA-Public Use
  Company Number: NVSJ2020JP012159

PATIENT
  Age: 79 Year
  Sex: Male

DRUGS (2)
  1. BEOVU [Suspect]
     Active Substance: BROLUCIZUMAB-DBLL
     Indication: AGE-RELATED MACULAR DEGENERATION
     Dosage: 6 MG
     Route: 031
     Dates: start: 20200924, end: 20200924
  2. BEOVU [Suspect]
     Active Substance: BROLUCIZUMAB-DBLL
     Indication: POLYPOIDAL CHOROIDAL VASCULOPATHY
     Dosage: 6 MG
     Route: 031
     Dates: start: 20200825, end: 20200825

REACTIONS (11)
  - Anterior chamber flare [Unknown]
  - Vitreous floaters [Recovering/Resolving]
  - Vitreous opacities [Unknown]
  - Retinal vasculitis [Unknown]
  - Retinal drusen [Unknown]
  - Retinal perivascular sheathing [Recovering/Resolving]
  - Visual acuity reduced transiently [Unknown]
  - Visual impairment [Unknown]
  - Iritis [Recovering/Resolving]
  - Keratic precipitates [Unknown]
  - Vision blurred [Unknown]

NARRATIVE: CASE EVENT DATE: 20201027
